FAERS Safety Report 16193172 (Version 1)
Quarter: 2019Q2

REPORT INFORMATION
  Report Type: Spontaneous
  Country: GB (occurrence: GB)
  Receive Date: 20190413
  Receipt Date: 20190413
  Transmission Date: 20190711
  Serious: Yes (Other)
  Sender: FDA-Public Use
  Company Number: GB-ROCHE-2300132

PATIENT

DRUGS (1)
  1. CAPECITABINE. [Suspect]
     Active Substance: CAPECITABINE
     Indication: GASTROINTESTINAL CARCINOMA
     Route: 065

REACTIONS (6)
  - Arrhythmia [Unknown]
  - Myocardial infarction [Unknown]
  - Palpitations [Unknown]
  - Left ventricular hypertrophy [Unknown]
  - Ventricular flutter [Unknown]
  - Angina pectoris [Unknown]
